FAERS Safety Report 15116729 (Version 1)
Quarter: 2018Q3

REPORT INFORMATION
  Report Type: Spontaneous
  Country: CN (occurrence: CN)
  Receive Date: 20180706
  Receipt Date: 20180706
  Transmission Date: 20181010
  Serious: Yes (Hospitalization, Disabling)
  Sender: FDA-Public Use
  Company Number: CN-BAYER-2018-123304

PATIENT
  Age: 64 Year
  Sex: Male

DRUGS (1)
  1. BAYASPIRIN 100 MG [Suspect]
     Active Substance: ASPIRIN
     Indication: COAGULOPATHY
     Dosage: 100 MG, QD
     Route: 048
     Dates: start: 20180401, end: 20180401

REACTIONS (3)
  - Diarrhoea [Recovering/Resolving]
  - Henoch-Schonlein purpura [Recovering/Resolving]
  - Henoch-Schonlein purpura nephritis [Recovering/Resolving]

NARRATIVE: CASE EVENT DATE: 20180401
